FAERS Safety Report 5124767-2 (Version None)
Quarter: 2006Q4

REPORT INFORMATION
  Report Type: 
  Country: None (occurrence: None)
  Receive Date: 20061011
  Receipt Date: 20060929
  Transmission Date: 20070319
  Serious: Yes (Hospitalization)
  Sender: FDA-Public Use
  Company Number: CA-AVENTIS-200620437GDDC

PATIENT
  Age: 86 Year
  Sex: Male

DRUGS (8)
  1. METFORMIN HCL [Suspect]
     Indication: DIABETES MELLITUS NON-INSULIN-DEPENDENT
     Route: 048
     Dates: end: 20060927
  2. GLYBURIDE [Suspect]
     Indication: DIABETES MELLITUS NON-INSULIN-DEPENDENT
     Route: 048
     Dates: end: 20060927
  3. MICARDIS [Concomitant]
     Indication: CARDIOVASCULAR DISORDER
     Route: 048
  4. HYDROCHLOROTHIAZDE TAB [Concomitant]
     Indication: CARDIOVASCULAR DISORDER
     Route: 048
     Dates: end: 20060926
  5. ASPIRIN [Concomitant]
     Indication: CARDIOVASCULAR DISORDER
     Route: 048
  6. AMLODIPINE [Concomitant]
     Indication: CARDIOVASCULAR DISORDER
     Route: 048
  7. AMILORIDE HCL AND HYDROCHLOROTHIAZIDE [Concomitant]
     Indication: CARDIOVASCULAR DISORDER
     Route: 048
     Dates: end: 20060926
  8. DIGOXIN [Concomitant]
     Indication: CARDIOVASCULAR DISORDER

REACTIONS (5)
  - HEPATOTOXICITY [None]
  - HYPOGLYCAEMIA [None]
  - MYOCARDIAL INFARCTION [None]
  - PROSTATE CANCER METASTATIC [None]
  - RENAL FAILURE ACUTE [None]
